FAERS Safety Report 9326380 (Version 2)
Quarter: 2013Q3

REPORT INFORMATION
  Report Type: Spontaneous
  Country: DE (occurrence: DE)
  Receive Date: 20130604
  Receipt Date: 20130716
  Transmission Date: 20140515
  Serious: Yes (Other)
  Sender: FDA-Public Use
  Company Number: DE-VERTEX PHARMACEUTICALS INC-2013-006704

PATIENT
  Age: 40 Year
  Sex: Female
  Weight: 81 kg

DRUGS (2)
  1. INCIVO [Suspect]
     Indication: PRODUCT USED FOR UNKNOWN INDICATION
     Dosage: AT ONCE, TABLET
     Route: 048
     Dates: start: 20130528, end: 20130528
  2. ALCOHOL [Suspect]
     Indication: PRODUCT USED FOR UNKNOWN INDICATION
     Dosage: DOSAGE FORM: LIQUID
     Route: 048

REACTIONS (2)
  - Suicide attempt [Unknown]
  - Intentional overdose [Unknown]
